FAERS Safety Report 8597477-7 (Version None)
Quarter: 2012Q3

REPORT INFORMATION
  Report Type: 
  Country: None (occurrence: None)
  Receive Date: 20120816
  Receipt Date: 20120806
  Transmission Date: 20120928
  Serious: Yes (Other)
  Sender: FDA-Public Use
  Company Number: TW-ACCORD-010064

PATIENT
  Age: 31 Year
  Sex: Male

DRUGS (3)
  1. TOPIRAMATE [Suspect]
     Indication: TEMPORAL LOBE EPILEPSY
  2. CLONAZEPAM [Concomitant]
     Indication: TEMPORAL LOBE EPILEPSY
  3. NEURONTIN [Concomitant]
     Indication: TEMPORAL LOBE EPILEPSY

REACTIONS (2)
  - ERECTILE DYSFUNCTION [None]
  - PREMATURE EJACULATION [None]
